FAERS Safety Report 21190408 (Version 2)
Quarter: 2022Q3

REPORT INFORMATION
  Report Type: Spontaneous
  Country: US (occurrence: US)
  Receive Date: 20220809
  Receipt Date: 20220920
  Transmission Date: 20221027
  Serious: Yes (Hospitalization)
  Sender: FDA-Public Use
  Company Number: US-JNJFOC-20220805108

PATIENT
  Age: 61 Year
  Sex: Female

DRUGS (1)
  1. NEUTROGENA BEACH DEF WATER PLUS SUN PROTECT BR?D SPECT SPF 70 (AV\HOM\ [Suspect]
     Active Substance: AVOBENZONE\HOMOSALATE\OCTISALATE\OCTOCRYLENE
     Indication: Prophylaxis against solar radiation
     Dosage: JUST ENOUGH TO COVER SKIN
     Route: 061
     Dates: start: 20220718, end: 20220722

REACTIONS (1)
  - Adverse event [Not Recovered/Not Resolved]

NARRATIVE: CASE EVENT DATE: 20220722
